FAERS Safety Report 13109569 (Version 3)
Quarter: 2017Q1

REPORT INFORMATION
  Report Type: Report from Study
  Country: US (occurrence: US)
  Receive Date: 20170112
  Receipt Date: 20170324
  Transmission Date: 20170428
  Serious: Yes (Death, Life-Threatening, Hospitalization, Other)
  Sender: FDA-Public Use
  Company Number: US-GILEAD-2017-0252505

PATIENT
  Age: 84 Year
  Sex: Male

DRUGS (3)
  1. AMBRISENTAN [Suspect]
     Active Substance: AMBRISENTAN
     Indication: PRODUCT USED FOR UNKNOWN INDICATION
     Dosage: 5 MG, QD
     Route: 065
  2. TRACLEER [Concomitant]
     Active Substance: BOSENTAN
  3. ADCIRCA [Concomitant]
     Active Substance: TADALAFIL

REACTIONS (5)
  - Blood pressure decreased [Not Recovered/Not Resolved]
  - Cardio-respiratory arrest [Unknown]
  - Rib fracture [Unknown]
  - Death [Fatal]
  - Syncope [Not Recovered/Not Resolved]
